FAERS Safety Report 6180387-2 (Version None)
Quarter: 2009Q2

REPORT INFORMATION
  Report Type: 
  Country: None (occurrence: None)
  Receive Date: 20090506
  Receipt Date: 20080613
  Transmission Date: 20091009
  Serious: Yes (Death)
  Sender: FDA-Public Use
  Company Number: US-PFIZER INC-2008065494

PATIENT
  Sex: Male

DRUGS (12)
  1. DILANTIN [Suspect]
     Indication: CONVULSION
     Dosage: 100 MG, 3X/DAY
     Route: 048
     Dates: start: 20050220
  2. COLACE [Concomitant]
  3. PROTONIX [Concomitant]
     Route: 042
  4. LOPRESSOR [Concomitant]
     Route: 048
  5. CARDIZEM [Concomitant]
     Route: 048
  6. DEPAKOTE [Concomitant]
     Route: 048
  7. KEPPRA [Concomitant]
     Route: 048
  8. FELODIPINE [Concomitant]
     Dosage: MORNING
     Route: 048
  9. HYDROCHLOROTHIAZIDE [Concomitant]
     Dosage: MORNING
  10. DOXAZOSIN MESYLATE [Concomitant]
     Dosage: AT BEDTIME
     Route: 048
  11. METFORMIN HCL [Concomitant]
     Route: 048
  12. GLYBURIDE [Concomitant]
     Route: 048

REACTIONS (1)
  - TOXIC EPIDERMAL NECROLYSIS [None]
